FAERS Safety Report 10368253 (Version 1)
Quarter: 2014Q3

REPORT INFORMATION
  Report Type: Spontaneous
  Country: US (occurrence: None)
  Receive Date: 20140806
  Receipt Date: 20140806
  Transmission Date: 20150326
  Serious: Yes (Other)
  Sender: FDA-Public Use
  Company Number: None

PATIENT
  Age: 42 Year
  Sex: Male
  Weight: 67.5 kg

DRUGS (17)
  1. SPIRONOLACTONE. [Concomitant]
     Active Substance: SPIRONOLACTONE
  2. BUMETANIDE. [Concomitant]
     Active Substance: BUMETANIDE
  3. NYSTATIN. [Concomitant]
     Active Substance: NYSTATIN
  4. CHLORHEXIDINE [Concomitant]
     Active Substance: CHLORHEXIDINE
  5. D5W [Concomitant]
  6. FOLIC ACID. [Concomitant]
     Active Substance: FOLIC ACID
  7. REGULAR INSULIN INFUSION [Concomitant]
  8. KC1 20 MEG [Concomitant]
  9. NACI FLUSHES [Concomitant]
  10. AMIODARONE [Concomitant]
     Active Substance: AMIODARONE
  11. LANSOPRAZOLE. [Concomitant]
     Active Substance: LANSOPRAZOLE
  12. NICARDIPEIN [Concomitant]
  13. VANCOMYCIN [Concomitant]
     Active Substance: VANCOMYCIN
  14. ACETAMINOPHEN. [Concomitant]
     Active Substance: ACETAMINOPHEN
  15. PIPERACILLIN/TAZOBACTAM [Concomitant]
     Active Substance: PIPERACILLIN SODIUM\TAZOBACTAM SODIUM
  16. THIAMINE [Concomitant]
     Active Substance: THIAMINE
  17. HEPARIN SODIUM 25,000 USP HEPARIN UNITS/250ML HOSPIRA [Suspect]
     Active Substance: HEPARIN SODIUM
     Indication: ANTICOAGULANT THERAPY
     Dosage: UNITS/HR, CONTINUOUS, INTRAVENOUS
     Route: 042
     Dates: start: 20140803, end: 20140804

REACTIONS (2)
  - Activated partial thromboplastin time prolonged [None]
  - Product quality issue [None]

NARRATIVE: CASE EVENT DATE: 20140803
